FAERS Safety Report 6169030-6 (Version None)
Quarter: 2009Q2

REPORT INFORMATION
  Report Type: 
  Country: None (occurrence: None)
  Receive Date: 20090424
  Receipt Date: 20090424
  Transmission Date: 20091009
  Serious: Yes (Other)
  Sender: FDA-Public Use
  Company Number: None

PATIENT
  Sex: Female
  Weight: 71.2147 kg

DRUGS (1)
  1. NIFIDIPINE ER 90MB MYLAN LAB [Suspect]
     Indication: HYPERTENSION
     Dosage: 1 TABLET EACH DAY PO
     Route: 048
     Dates: start: 20090418, end: 20090419

REACTIONS (9)
  - ANXIETY [None]
  - BLOOD PRESSURE INCREASED [None]
  - DRY MOUTH [None]
  - DYSPHAGIA [None]
  - ECONOMIC PROBLEM [None]
  - HEADACHE [None]
  - PHARYNGITIS STREPTOCOCCAL [None]
  - PRODUCT QUALITY ISSUE [None]
  - PRODUCT SUBSTITUTION ISSUE [None]
